FAERS Safety Report 6212559-2 (Version None)
Quarter: 2009Q2

REPORT INFORMATION
  Report Type: 
  Country: None (occurrence: None)
  Receive Date: 20090603
  Receipt Date: 20090522
  Transmission Date: 20091009
  Serious: Yes (Hospitalization)
  Sender: FDA-Public Use
  Company Number: PHHY2009JP19947

PATIENT
  Sex: Female
  Weight: 65 kg

DRUGS (20)
  1. ICL670A ICL+DISTAB [Suspect]
     Indication: IRON OVERLOAD
     Dosage: 1250 MG/DAY
     Route: 048
     Dates: start: 20081008, end: 20081016
  2. ICL670A ICL+DISTAB [Suspect]
     Dosage: 1250 MG/DAY
     Route: 048
     Dates: start: 20081028, end: 20081029
  3. NEORAL [Concomitant]
     Indication: MYELODYSPLASTIC SYNDROME
     Dosage: UNK
     Route: 048
     Dates: start: 20080208, end: 20080626
  4. GLAKAY [Concomitant]
     Dosage: 15 MG, UNK
     Route: 048
  5. CINAL [Concomitant]
     Dosage: 1 G, UNK
     Route: 048
  6. FAROM [Concomitant]
     Dosage: 400 MG, UNK
     Route: 048
  7. PRIMOBOLAN [Concomitant]
     Dosage: 6 MG, UNK
     Route: 048
  8. TAKEPRON [Concomitant]
     Dosage: 45 MG, UNK
     Route: 048
  9. ISCOTIN [Concomitant]
     Dosage: 300 MG, UNK
     Route: 048
  10. MICARDIS [Concomitant]
     Dosage: 80 MG, UNK
     Route: 048
  11. MECOBALAMIN [Concomitant]
     Dosage: 1000 MG, UNK
     Route: 048
  12. ALLOPURINOL [Concomitant]
     Dosage: 200 MG, UNK
     Route: 048
  13. ITRIZOLE [Concomitant]
     Dosage: 3 ML, UNK
     Route: 048
  14. GARENOXACIN [Concomitant]
     Dosage: 800 MG, UNK
     Route: 048
  15. CARBAZOCHROME SODIUM SULFONATE [Concomitant]
     Dosage: 400 MG, UNK
     Route: 042
  16. DAIPHEN [Concomitant]
     Dosage: 3 G, UNK
     Route: 048
  17. SOLU-CORTEF [Concomitant]
     Dosage: 400 MG, UNK
     Route: 042
  18. BROACT [Concomitant]
     Dosage: 4 G, UNK
     Route: 042
  19. MEROPEN [Concomitant]
     Dosage: 2 G, UNK
     Route: 041
  20. FUNGUARD [Concomitant]
     Dosage: 200 MG, UNK
     Route: 041

REACTIONS (6)
  - BLOOD CREATININE INCREASED [None]
  - BLOOD UREA INCREASED [None]
  - HYPOTENSION [None]
  - PYREXIA [None]
  - RASH [None]
  - RASH GENERALISED [None]
